FAERS Safety Report 6062009-4 (Version None)
Quarter: 2009Q1

REPORT INFORMATION
  Report Type: 
  Country: None (occurrence: None)
  Receive Date: 20090202
  Receipt Date: 20090122
  Transmission Date: 20090719
  Serious: Yes (Hospitalization)
  Sender: FDA-Public Use
  Company Number: DE-B.I. PHARMACEUTICALS,INC./RIDGEFIELD-2009-DE-00689DE

PATIENT
  Age: 64 Year
  Sex: Male
  Weight: 73 kg

DRUGS (4)
  1. SPIRIVA 18 MIKROGRAMM KAPSEL MIT INHALATIONSPULVER [Suspect]
     Indication: CHRONIC OBSTRUCTIVE PULMONARY DISEASE
     Dosage: 18MCG
     Route: 055
     Dates: start: 20081201
  2. ZOTALEX [Concomitant]
     Indication: CARDIAC DISORDER
  3. PANTOZOL 20 MG [Concomitant]
     Indication: GASTROOESOPHAGEAL REFLUX DISEASE
  4. BIPHOSPHONAT [Concomitant]
     Indication: OSTEOPOROSIS

REACTIONS (8)
  - ARRHYTHMIA [None]
  - CARDIAC DISORDER [None]
  - GALLBLADDER PAIN [None]
  - HEART RATE INCREASED [None]
  - HEPATIC PAIN [None]
  - ORAL CANDIDIASIS [None]
  - URINARY RETENTION [None]
  - VISION BLURRED [None]
